FAERS Safety Report 9264483 (Version 4)
Quarter: 2013Q4

REPORT INFORMATION
  Report Type: Report from Study
  Country: JP (occurrence: JP)
  Receive Date: 20130501
  Receipt Date: 20131120
  Transmission Date: 20140711
  Serious: Yes (Hospitalization)
  Sender: FDA-Public Use
  Company Number: JP-ROCHE-1218256

PATIENT
  Age: 45 Year
  Sex: Female

DRUGS (17)
  1. OMALIZUMAB [Suspect]
     Indication: ASTHMA
     Route: 058
     Dates: start: 20120127
  2. OMALIZUMAB [Suspect]
     Dosage: LAST DOSE ON :- 27/MAR/2012
     Route: 058
     Dates: start: 20120221, end: 20120327
  3. ADOAIR [Concomitant]
     Route: 065
     Dates: start: 20111121
  4. ALVESCO [Concomitant]
     Route: 065
     Dates: start: 20111121
  5. SINGULAIR [Concomitant]
     Route: 065
     Dates: start: 20110201
  6. ALLEGRA [Concomitant]
     Route: 065
     Dates: start: 20111121
  7. PREDONINE [Concomitant]
     Route: 065
     Dates: start: 20111111
  8. PREDONINE [Concomitant]
     Route: 065
     Dates: start: 20120222, end: 20120224
  9. PREDONINE [Concomitant]
     Route: 065
     Dates: end: 20120309
  10. MYSLEE [Concomitant]
     Route: 065
     Dates: start: 20120127
  11. TETRAMIDE [Concomitant]
     Route: 065
     Dates: start: 20120127, end: 20120514
  12. RESLIN [Concomitant]
     Route: 065
     Dates: start: 20120127, end: 20120305
  13. PRIDOL [Concomitant]
     Route: 065
     Dates: start: 20120222
  14. HICORT (JAPAN) [Concomitant]
     Route: 041
     Dates: start: 20120222
  15. HICORT (JAPAN) [Concomitant]
     Route: 065
     Dates: start: 20120227
  16. SULTANOL [Concomitant]
  17. TAKEPRON [Concomitant]
     Route: 065
     Dates: start: 20120527

REACTIONS (3)
  - Anaphylactic reaction [Recovering/Resolving]
  - Respiratory disorder [Unknown]
  - Asthma [Recovering/Resolving]
